FAERS Safety Report 13780321 (Version 1)
Quarter: 2017Q3

REPORT INFORMATION
  Report Type: Spontaneous
  Country: US (occurrence: US)
  Receive Date: 20170724
  Receipt Date: 20170724
  Transmission Date: 20171127
  Serious: No
  Sender: FDA-Public Use
  Company Number: US-SHIRE-US201714741

PATIENT

DRUGS (1)
  1. XIIDRA [Suspect]
     Active Substance: LIFITEGRAST
     Indication: DRY EYE
     Dosage: 2 GTT, 2X/DAY:BID
     Route: 047

REACTIONS (7)
  - Instillation site pain [Unknown]
  - Instillation site irritation [Unknown]
  - Abdominal discomfort [Unknown]
  - Visual impairment [Unknown]
  - Dizziness [Unknown]
  - Vision blurred [Unknown]
  - Instillation site reaction [Unknown]
